FAERS Safety Report 8517851-4 (Version None)
Quarter: 2012Q3

REPORT INFORMATION
  Report Type: 
  Country: None (occurrence: None)
  Receive Date: 20120718
  Receipt Date: 20110620
  Transmission Date: 20120928
  Serious: No
  Sender: FDA-Public Use
  Company Number: US-BRISTOL-MYERS SQUIBB COMPANY-15844038

PATIENT
  Age: 82 Year
  Sex: Male
  Weight: 87 kg

DRUGS (4)
  1. METFORMIN HYDROCHLORIDE [Concomitant]
  2. FLOMAX [Concomitant]
  3. COUMADIN [Suspect]
     Indication: ATRIAL FIBRILLATION
     Route: 048
     Dates: start: 20110601
  4. CRESTOR [Concomitant]

REACTIONS (1)
  - DIZZINESS [None]
